FAERS Safety Report 23021862 (Version 1)
Quarter: 2023Q4

REPORT INFORMATION
  Report Type: Spontaneous
  Country: US (occurrence: US)
  Receive Date: 20231003
  Receipt Date: 20231003
  Transmission Date: 20240110
  Serious: No
  Sender: FDA-Public Use
  Company Number: US-HORIZON THERAPEUTICS-HZN-2023-005685

PATIENT

DRUGS (2)
  1. KRYSTEXXA [Suspect]
     Active Substance: PEGLOTICASE
     Indication: Product used for unknown indication
     Dosage: PEGLOTICASE PLUS MYCOPHENOLATE THERAPY (MMF DOSE UP TO 1000MG DAILY) A
     Route: 065
  2. MYCOPHENOLIC ACID [Suspect]
     Active Substance: MYCOPHENOLIC ACID
     Indication: Product used for unknown indication
     Dosage: PEGLOTICASE PLUS MYCOPHENOLATE THERAPY (MMF DOSE UP TO 1000MG DAILY) A
     Route: 065

REACTIONS (2)
  - Loss of therapeutic response [Recovered/Resolved]
  - Off label use [Unknown]
